FAERS Safety Report 15391896 (Version 1)
Quarter: 2018Q3

REPORT INFORMATION
  Report Type: Report from Study
  Country: US (occurrence: US)
  Receive Date: 20180917
  Receipt Date: 20180917
  Transmission Date: 20181010
  Serious: No
  Sender: FDA-Public Use
  Company Number: PHEH2018US037516

PATIENT
  Sex: Male

DRUGS (2)
  1. TASIGNA [Suspect]
     Active Substance: NILOTINIB
     Indication: PRODUCT USED FOR UNKNOWN INDICATION
     Route: 065
  2. GLEEVEC [Suspect]
     Active Substance: IMATINIB MESYLATE
     Indication: PRODUCT USED FOR UNKNOWN INDICATION
     Route: 065

REACTIONS (9)
  - Migraine [Unknown]
  - Secretion discharge [Unknown]
  - Depression [Unknown]
  - Insomnia [Unknown]
  - Diarrhoea [Unknown]
  - Wheezing [Unknown]
  - Pruritus [Unknown]
  - Decreased appetite [Unknown]
  - Asthenia [Unknown]
